FAERS Safety Report 4659404-4 (Version None)
Quarter: 2005Q2

REPORT INFORMATION
  Report Type: 
  Country: None (occurrence: None)
  Receive Date: 20050411
  Receipt Date: 20050217
  Transmission Date: 20051028
  Serious: Yes (Other)
  Sender: FDA-Public Use
  Company Number: 396170

PATIENT
  Sex: 0

DRUGS (1)
  1. FUZEON [Suspect]

REACTIONS (1)
  - HYPERSENSITIVITY [None]
